FAERS Safety Report 9723531 (Version 1)
Quarter: 2013Q4

REPORT INFORMATION
  Report Type: Spontaneous
  Country: CH (occurrence: CH)
  Receive Date: 20131202
  Receipt Date: 20131202
  Transmission Date: 20140711
  Serious: Yes (Hospitalization)
  Sender: FDA-Public Use
  Company Number: CH-ASTRAZENECA-2013SE85710

PATIENT
  Age: 83 Year
  Sex: Male
  Weight: 67 kg

DRUGS (14)
  1. IMUREK [Suspect]
     Indication: NEUROPATHY PERIPHERAL
     Route: 048
     Dates: start: 20130730
  2. NEXIUM [Suspect]
     Route: 048
     Dates: start: 20130322
  3. BACTRIM [Suspect]
     Indication: URINARY TRACT INFECTION
     Route: 048
     Dates: start: 20130813
  4. CIPROFLOXACIN [Suspect]
     Indication: URINARY TRACT INFECTION
     Route: 048
     Dates: start: 20130808, end: 20130812
  5. MOTILIUM [Suspect]
     Route: 060
     Dates: start: 20130806
  6. SINTROM [Concomitant]
     Indication: ATRIAL FIBRILLATION
     Route: 048
     Dates: start: 20130704
  7. SINTROM [Concomitant]
     Indication: ATRIAL FLUTTER
     Route: 048
     Dates: start: 20130704
  8. PREDNISONE [Concomitant]
     Indication: CONGENITAL NEUROPATHY
     Route: 048
     Dates: start: 20130703
  9. MADOPAR [Concomitant]
     Indication: PARKINSON^S DISEASE
     Route: 048
     Dates: start: 2005
  10. AZILECT [Concomitant]
     Indication: PARKINSON^S DISEASE
     Route: 048
     Dates: start: 2005
  11. PRADIF [Concomitant]
     Indication: BENIGN PROSTATIC HYPERPLASIA
     Route: 048
     Dates: start: 20130813
  12. LAXOBERON [Concomitant]
     Indication: CONSTIPATION
     Route: 048
     Dates: start: 20130710
  13. MOVICOL [Concomitant]
     Indication: CONSTIPATION
     Route: 048
     Dates: start: 20130620
  14. CALCIMAGON [Concomitant]
     Route: 048

REACTIONS (1)
  - Cholestatic liver injury [Recovering/Resolving]
